FAERS Safety Report 13352250 (Version 1)
Quarter: 2017Q1

REPORT INFORMATION
  Report Type: Spontaneous
  Country: US (occurrence: US)
  Receive Date: 20170320
  Receipt Date: 20170320
  Transmission Date: 20170429
  Serious: No
  Sender: FDA-Public Use
  Company Number: US-SA-2016SA099069

PATIENT
  Age: 74 Year
  Sex: Female

DRUGS (1)
  1. NASACORT ALLERGY 24HR [Suspect]
     Active Substance: TRIAMCINOLONE ACETONIDE
     Indication: MIDDLE EAR EFFUSION
     Dosage: STOPP DATE: 18MAY OR 19 MAY DOSE:1 PUFF(S)
     Route: 045
     Dates: start: 20160510

REACTIONS (2)
  - Drug ineffective [Unknown]
  - Product use issue [Unknown]
